FAERS Safety Report 5129030-1 (Version None)
Quarter: 2006Q4

REPORT INFORMATION
  Report Type: 
  Country: None (occurrence: None)
  Receive Date: 20061017
  Receipt Date: 20061012
  Transmission Date: 20070319
  Serious: Yes (Hospitalization)
  Sender: FDA-Public Use
  Company Number: JP-MERCK-0610USA09791

PATIENT
  Age: 72 Year
  Sex: Female

DRUGS (4)
  1. SINGULAIR [Suspect]
     Route: 048
     Dates: start: 20060710, end: 20060904
  2. THEO-DUR [Concomitant]
     Route: 048
     Dates: start: 20060710, end: 20060904
  3. ZESULAN [Concomitant]
     Route: 048
     Dates: start: 20060710, end: 20060904
  4. LENDORMIN [Concomitant]
     Route: 048
     Dates: end: 20060904

REACTIONS (2)
  - EOSINOPHILIA [None]
  - RHABDOMYOLYSIS [None]
